FAERS Safety Report 6102162-7 (Version None)
Quarter: 2009Q1

REPORT INFORMATION
  Report Type: 
  Country: None (occurrence: None)
  Receive Date: 20090227
  Receipt Date: 20080305
  Transmission Date: 20090719
  Serious: Yes (Other)
  Sender: FDA-Public Use
  Company Number: 552241

PATIENT
  Age: 18 Year
  Sex: Male
  Weight: 74.8 kg

DRUGS (1)
  1. ACCUTANE [Suspect]
     Indication: ACNE
     Dosage: 40 MG DAILY
     Dates: start: 20031014, end: 20040407

REACTIONS (12)
  - ACNE [None]
  - ARTHRALGIA [None]
  - CHAPPED LIPS [None]
  - COLITIS [None]
  - CROHN'S DISEASE [None]
  - DRY EYE [None]
  - DRY SKIN [None]
  - FATIGUE [None]
  - INFLAMMATORY BOWEL DISEASE [None]
  - LIP DRY [None]
  - NASAL DRYNESS [None]
  - SKIN EXFOLIATION [None]
